FAERS Safety Report 15785191 (Version 2)
Quarter: 2019Q2

REPORT INFORMATION
  Report Type: Spontaneous
  Country: US (occurrence: US)
  Receive Date: 20190103
  Receipt Date: 20190605
  Transmission Date: 20190711
  Serious: No
  Sender: FDA-Public Use
  Company Number: US-PFIZER INC-2018535347

PATIENT
  Age: 66 Year
  Sex: Female
  Weight: 58.97 kg

DRUGS (2)
  1. ADVIL [Suspect]
     Active Substance: IBUPROFEN
     Indication: HEADACHE
  2. ADVIL [Suspect]
     Active Substance: IBUPROFEN
     Indication: PAIN
     Dosage: UNK, DAILY (200MG-4 OR 5 TABLETS TAKEN BY MOUTH DAILY)
     Route: 048
     Dates: end: 201811

REACTIONS (2)
  - Drug ineffective [Recovered/Resolved]
  - Intentional product misuse [Unknown]

NARRATIVE: CASE EVENT DATE: 201811
